FAERS Safety Report 8883045 (Version 1)
Quarter: 2012Q4

REPORT INFORMATION
  Report Type: 
  Country: US (occurrence: US)
  Receive Date: 20121102
  Receipt Date: 20121102
  Transmission Date: 20130627
  Serious: Yes (Other)
  Sender: FDA-Public Use
  Company Number: US-ABBOTT-12P-163-0932291-00

PATIENT
  Sex: Female

DRUGS (4)
  1. BIAXIN [Suspect]
     Indication: PRODUCT USED FOR UNKNOWN INDICATION
  2. UNSPECIFIED INGREDIENT [Suspect]
     Indication: PRODUCT USED FOR UNKNOWN INDICATION
  3. HUMAN PAPILLOMA VACCINE [Concomitant]
     Indication: PRODUCT USED FOR UNKNOWN INDICATION
  4. HUMAN PAPILLOMA VACCINE [Concomitant]
     Dosage: 2nd dose
     Dates: start: 2012

REACTIONS (3)
  - Hypersensitivity [Recovered/Resolved]
  - Respiratory tract congestion [Recovered/Resolved]
  - Bronchitis [Recovered/Resolved]
